FAERS Safety Report 15404472 (Version 6)
Quarter: 2019Q1

REPORT INFORMATION
  Report Type: Spontaneous
  Country: US (occurrence: US)
  Receive Date: 20180919
  Receipt Date: 20190121
  Transmission Date: 20190417
  Serious: No
  Sender: FDA-Public Use
  Company Number: US-009507513-1808USA012366

PATIENT
  Age: 79 Year
  Sex: Female

DRUGS (2)
  1. JANUVIA [Suspect]
     Active Substance: SITAGLIPTIN PHOSPHATE
     Dosage: UNK, IN THE MORNING, BEFORE MEALS
     Route: 048
     Dates: start: 2016
  2. JANUVIA [Suspect]
     Active Substance: SITAGLIPTIN PHOSPHATE
     Indication: DIABETES MELLITUS
     Dosage: UNK, IN THE MORNING, BEFORE MEALS
     Route: 048
     Dates: start: 2016

REACTIONS (6)
  - Product solubility abnormal [Recovered/Resolved]
  - Product dose omission [Unknown]
  - Product residue present [Recovered/Resolved]
  - Product complaint [Recovered/Resolved]
  - No adverse event [Unknown]
  - Medication crystals in urine present [Recovered/Resolved]

NARRATIVE: CASE EVENT DATE: 2018
